FAERS Safety Report 16978303 (Version 1)
Quarter: 2019Q4

REPORT INFORMATION
  Report Type: Spontaneous
  Country: AU (occurrence: AU)
  Receive Date: 20191031
  Receipt Date: 20191031
  Transmission Date: 20200122
  Serious: Yes (Other)
  Sender: FDA-Public Use
  Company Number: NVSC2019AU018338

PATIENT
  Sex: Female

DRUGS (17)
  1. PREDNISONE. [Suspect]
     Active Substance: PREDNISONE
     Indication: GRAFT VERSUS HOST DISEASE
     Dosage: 50 MG, QD
     Route: 065
  2. XYLOCAINE [Suspect]
     Active Substance: LIDOCAINE HYDROCHLORIDE
     Indication: GRAFT VERSUS HOST DISEASE
     Dosage: UNK UNK, PRN (VISCOUS)
     Route: 065
  3. PANTOPRAZOLE [Suspect]
     Active Substance: PANTOPRAZOLE
     Indication: GRAFT VERSUS HOST DISEASE
     Dosage: 40 MG, QD
     Route: 065
  4. PREDNISOLONE. [Suspect]
     Active Substance: PREDNISOLONE
     Indication: GRAFT VERSUS HOST DISEASE
     Dosage: 2 MG/KG, QD
     Route: 048
  5. ENDONE [Suspect]
     Active Substance: OXYCODONE HYDROCHLORIDE
     Indication: GRAFT VERSUS HOST DISEASE
     Dosage: 5 MG, PRN
     Route: 065
  6. DIPROSONE-OV [Suspect]
     Active Substance: BETAMETHASONE DIPROPIONATE
     Indication: GRAFT VERSUS HOST DISEASE
     Dosage: 1 OT, BID
     Route: 065
  7. ASPIRIN. [Suspect]
     Active Substance: ASPIRIN
     Indication: GRAFT VERSUS HOST DISEASE
     Dosage: 100 MG, QD
     Route: 065
  8. VALTREX [Suspect]
     Active Substance: VALACYCLOVIR HYDROCHLORIDE
     Indication: GRAFT VERSUS HOST DISEASE
     Dosage: 500 MG, QD
     Route: 065
  9. BACTRIM DS [Suspect]
     Active Substance: SULFAMETHOXAZOLE\TRIMETHOPRIM
     Indication: GRAFT VERSUS HOST DISEASE
     Dosage: 1 OT, BID (MON AND THUR)
     Route: 065
  10. TARGIN [Suspect]
     Active Substance: NALOXONE HYDROCHLORIDE\OXYCODONE HYDROCHLORIDE
     Indication: GRAFT VERSUS HOST DISEASE
     Dosage: 45 MG, BID
     Route: 065
  11. MYCOPHENOLATE MOFETIL. [Suspect]
     Active Substance: MYCOPHENOLATE MOFETIL
     Indication: GRAFT VERSUS HOST DISEASE
     Dosage: 500 MG, BID
     Route: 065
  12. THALIDOMIDE [Suspect]
     Active Substance: THALIDOMIDE
     Indication: GRAFT VERSUS HOST DISEASE
     Dosage: 100 MG, QD
     Route: 065
  13. CYCLOSPORINE. [Suspect]
     Active Substance: CYCLOSPORINE
     Indication: GRAFT VERSUS HOST DISEASE
     Dosage: 50 MG, BID
     Route: 065
  14. FLUCONAZOLE. [Suspect]
     Active Substance: FLUCONAZOLE
     Indication: GRAFT VERSUS HOST DISEASE
     Dosage: 200 MG, QD
     Route: 065
     Dates: start: 201906
  15. CITALOPRAM [Suspect]
     Active Substance: CITALOPRAM HYDROBROMIDE
     Indication: GRAFT VERSUS HOST DISEASE
     Dosage: 40 MG
     Route: 065
  16. IBRUTINIB [Suspect]
     Active Substance: IBRUTINIB
     Indication: GRAFT VERSUS HOST DISEASE
     Dosage: 420 MG, QD
     Route: 065
  17. PENICILLIN V [Suspect]
     Active Substance: PENICILLIN V
     Indication: GRAFT VERSUS HOST DISEASE
     Dosage: 250 MG, BID
     Route: 065

REACTIONS (4)
  - Lichenification [Not Recovered/Not Resolved]
  - Ulcer [Not Recovered/Not Resolved]
  - Muscle tightness [Not Recovered/Not Resolved]
  - Pain [Not Recovered/Not Resolved]
